FAERS Safety Report 9916759 (Version 1)
Quarter: 2014Q1

REPORT INFORMATION
  Report Type: Spontaneous
  Country: US (occurrence: US)
  Receive Date: 20140221
  Receipt Date: 20140221
  Transmission Date: 20141002
  Serious: Yes (Death, Hospitalization)
  Sender: FDA-Public Use
  Company Number: US-PFIZER INC-2014050811

PATIENT
  Sex: Female

DRUGS (1)
  1. RAPAMUNE [Suspect]
     Indication: LIVER TRANSPLANT
     Dosage: 6 MG, DAILY (6 TABLETS OF 1 MG DAILY)
     Dates: start: 20130509

REACTIONS (3)
  - Thrombosis [Fatal]
  - Device related infection [Unknown]
  - Off label use [Unknown]
